FAERS Safety Report 18545775 (Version 1)
Quarter: 2020Q4

REPORT INFORMATION
  Report Type: Spontaneous
  Country: TW (occurrence: TW)
  Receive Date: 20201125
  Receipt Date: 20201125
  Transmission Date: 20210114
  Serious: Yes (Life-Threatening)
  Sender: FDA-Public Use
  Company Number: TW-MEITHEAL PHARMACEUTICALS-2020MHL00078

PATIENT
  Age: 58 Year
  Sex: Female

DRUGS (5)
  1. CARBOPLATIN. [Suspect]
     Active Substance: CARBOPLATIN
     Indication: CHEMOTHERAPY
     Dosage: CARBOPLATIN [AUC OF 5 I.V.]; EVERY 3 WEEKS FOR 4 CYCLES
     Dates: start: 201501
  2. CARBOPLATIN. [Suspect]
     Active Substance: CARBOPLATIN
     Dosage: CARBOPLATIN REGIMEN WITHOUT BEVACIZUMAB WAS CONTINUED FOR UP TO AN ADDITIONAL EIGHT CYCLES
     Dates: start: 201505, end: 201605
  3. DOCETAXEL. [Concomitant]
     Active Substance: DOCETAXEL
     Indication: OVARIAN CANCER
     Dosage: 5 COURSES/6 CYCLES
     Route: 065
     Dates: start: 201111, end: 201203
  4. CARBOPLATIN. [Suspect]
     Active Substance: CARBOPLATIN
     Indication: OVARIAN CANCER
     Dosage: 5 COURSE/6 CYCLES
     Route: 065
     Dates: start: 201111, end: 201203
  5. DOCETAXEL. [Concomitant]
     Active Substance: DOCETAXEL
     Indication: CHEMOTHERAPY

REACTIONS (1)
  - Anaphylactic shock [Recovered/Resolved]
